FAERS Safety Report 9185211 (Version 1)
Quarter: 2013Q1

REPORT INFORMATION
  Report Type: Spontaneous
  Country: US (occurrence: None)
  Receive Date: 20130321
  Receipt Date: 20130321
  Transmission Date: 20140127
  Serious: Yes (Death, Other)
  Sender: FDA-Public Use
  Company Number: DAV-AE-DIA-13-06

PATIENT
  Sex: Female

DRUGS (2)
  1. DIAZEPAM [Suspect]
     Indication: INTENTIONAL OVERDOSE
     Dates: start: 2011, end: 2011
  2. ACETAMINOPHEN [Concomitant]

REACTIONS (1)
  - Intentional overdose [None]
